FAERS Safety Report 9267215 (Version 2)
Quarter: 2013Q3

REPORT INFORMATION
  Report Type: Spontaneous
  Country: US (occurrence: US)
  Receive Date: 20130502
  Receipt Date: 20130725
  Transmission Date: 20140515
  Serious: Yes (Other)
  Sender: FDA-Public Use
  Company Number: US-ABBOTT-13P-163-1082314-00

PATIENT
  Age: 55 Year
  Sex: Female
  Weight: 77.18 kg

DRUGS (15)
  1. SYNTHROID [Suspect]
     Indication: HYPOTHYROIDISM
     Dates: start: 2011, end: 201302
  2. CYTOMEL [Concomitant]
     Indication: PRODUCT USED FOR UNKNOWN INDICATION
  3. ATIVAN [Concomitant]
     Indication: PRODUCT USED FOR UNKNOWN INDICATION
  4. EFFEXOR [Concomitant]
     Indication: ANTIDEPRESSANT THERAPY
  5. PREDNISONE [Concomitant]
     Indication: PRODUCT USED FOR UNKNOWN INDICATION
  6. LAMICTAL [Concomitant]
     Indication: AFFECTIVE DISORDER
  7. METHYLPREDNISOLONE [Concomitant]
     Indication: PRODUCT USED FOR UNKNOWN INDICATION
  8. BENADRYL [Concomitant]
     Indication: INSOMNIA
  9. RESTORIL [Concomitant]
     Indication: PRODUCT USED FOR UNKNOWN INDICATION
  10. NEURONTIN [Concomitant]
     Indication: ARTHRALGIA
  11. TOPAMAX [Concomitant]
     Indication: PRODUCT USED FOR UNKNOWN INDICATION
  12. VALIUM [Concomitant]
     Indication: PRODUCT USED FOR UNKNOWN INDICATION
  13. PERCOCET [Concomitant]
     Indication: PRODUCT USED FOR UNKNOWN INDICATION
  14. EPIDURAL INJECTIONS [Concomitant]
     Indication: PAIN MANAGEMENT
  15. VICODIN [Concomitant]
     Indication: PAIN

REACTIONS (6)
  - Detachment of macular retinal pigment epithelium [Recovered/Resolved]
  - Vision blurred [Recovered/Resolved]
  - Alopecia [Not Recovered/Not Resolved]
  - Weight increased [Not Recovered/Not Resolved]
  - Dry skin [Not Recovered/Not Resolved]
  - Onychoclasis [Not Recovered/Not Resolved]
